FAERS Safety Report 9770294 (Version 2)
Quarter: 2013Q4

REPORT INFORMATION
  Report Type: Report from Study
  Country: US (occurrence: US)
  Receive Date: 20131218
  Receipt Date: 20131218
  Transmission Date: 20140711
  Serious: Yes (Death)
  Sender: FDA-Public Use
  Company Number: US-B.I. PHARMACEUTICALS,INC./RIDGEFIELD-2013-BI-37461BI

PATIENT
  Age: 86 Year
  Sex: Female

DRUGS (10)
  1. GILOTRIF [Suspect]
     Indication: LUNG NEOPLASM MALIGNANT
     Dosage: 20 MG
     Route: 048
     Dates: start: 20131010, end: 20131206
  2. LOPERAMIDE [Concomitant]
     Dosage: 2 MG
  3. EUCERIN ORIGINAL LOTION [Concomitant]
     Dosage: FORMULATION: ORIGINAL LOTION
  4. METHADONE HCL [Concomitant]
     Dosage: 10 MG
  5. EXCEDRIN EXTRA STR [Concomitant]
  6. ALLERGRA-D 12 HOUR [Concomitant]
  7. GABAPENTIN [Concomitant]
     Dosage: 100 MG
  8. BACLOFEN [Concomitant]
     Dosage: 10 MG
  9. TRAMADOL HCL ER [Concomitant]
     Dosage: 100 MG
  10. COMPLETE MULTI TABLET [Concomitant]

REACTIONS (10)
  - Death [Fatal]
  - Fatigue [Unknown]
  - Stomatitis [Unknown]
  - Decreased appetite [Unknown]
  - Dry skin [Unknown]
  - Constipation [Unknown]
  - Infection [Unknown]
  - Vomiting [Unknown]
  - Weight decreased [Unknown]
  - Confusional state [Unknown]
